FAERS Safety Report 5290815-2 (Version None)
Quarter: 2007Q2

REPORT INFORMATION
  Report Type: 
  Country: None (occurrence: None)
  Receive Date: 20070409
  Receipt Date: 20070307
  Transmission Date: 20071010
  Serious: Yes (Death, Other)
  Sender: FDA-Public Use
  Company Number: US-PFIZER INC-2007008491

PATIENT
  Sex: Male
  Weight: 87.5 kg

DRUGS (1)
  1. BEXTRA [Suspect]
     Indication: ARTHRITIS
     Route: 048
     Dates: start: 20020101, end: 20050101

REACTIONS (3)
  - ARTERIOSCLEROSIS CORONARY ARTERY [None]
  - CHEST PAIN [None]
  - HYPERTENSIVE HEART DISEASE [None]
